FAERS Safety Report 13523975 (Version 1)
Quarter: 2017Q2

REPORT INFORMATION
  Report Type: Spontaneous
  Country: US (occurrence: US)
  Receive Date: 20170508
  Receipt Date: 20170508
  Transmission Date: 20170830
  Serious: No
  Sender: FDA-Public Use
  Company Number: US-VIFOR (INTERNATIONAL) INC.-VIT-2016-06796

PATIENT
  Sex: Male

DRUGS (17)
  1. ACETYLSALICYLIC ACID [Concomitant]
     Active Substance: ASPIRIN
  2. HYDRALAZINE HYDROCHLORIDE. [Concomitant]
     Active Substance: HYDRALAZINE HYDROCHLORIDE
  3. AMLODIPINE BESILATE [Concomitant]
     Active Substance: AMLODIPINE BESYLATE
  4. FLONASE [Concomitant]
     Active Substance: FLUTICASONE PROPIONATE
  5. PHOSLO [Concomitant]
     Active Substance: CALCIUM ACETATE
  6. VIAGRA [Concomitant]
     Active Substance: SILDENAFIL CITRATE
  7. VELTASSA [Suspect]
     Active Substance: PATIROMER
     Indication: HYPERKALAEMIA
     Route: 048
     Dates: start: 20160715, end: 2016
  8. COREG [Concomitant]
     Active Substance: CARVEDILOL
  9. LEVEMIR [Concomitant]
     Active Substance: INSULIN DETEMIR
  10. METFORMIN HYDROCHLORIDE. [Concomitant]
     Active Substance: METFORMIN HYDROCHLORIDE
  11. VELTASSA [Suspect]
     Active Substance: PATIROMER
     Indication: OFF LABEL USE
  12. SIMVASTATIN. [Concomitant]
     Active Substance: SIMVASTATIN
  13. TORASEMIDE [Concomitant]
     Active Substance: TORSEMIDE
  14. CENTRUM SILVER [Concomitant]
     Active Substance: MINERALS\VITAMINS
  15. HUMALOG KWIKPEN [Concomitant]
     Active Substance: INSULIN LISPRO
  16. VICTOZA [Concomitant]
     Active Substance: LIRAGLUTIDE
  17. TELMISARTAN. [Concomitant]
     Active Substance: TELMISARTAN

REACTIONS (5)
  - Treatment noncompliance [Unknown]
  - Renal impairment [Unknown]
  - Sinusitis [Unknown]
  - Blood potassium decreased [Unknown]
  - Pain in extremity [Unknown]

NARRATIVE: CASE EVENT DATE: 2016
